FAERS Safety Report 16753657 (Version 1)
Quarter: 2019Q3

REPORT INFORMATION
  Report Type: Spontaneous
  Country: US (occurrence: US)
  Receive Date: 20190829
  Receipt Date: 20190829
  Transmission Date: 20191005
  Serious: Yes (Hospitalization, Other)
  Sender: FDA-Public Use
  Company Number: US-ROCHE-2381895

PATIENT
  Sex: Female

DRUGS (1)
  1. RITUXAN [Suspect]
     Active Substance: RITUXIMAB
     Indication: AUTOIMMUNE DISORDER
     Dosage: ONGOING: UNKNOWN
     Route: 042
     Dates: start: 201906

REACTIONS (7)
  - Pulmonary mass [Not Recovered/Not Resolved]
  - Dyspnoea [Unknown]
  - Haemoptysis [Unknown]
  - Coronary artery occlusion [Recovered/Resolved]
  - Haemolytic anaemia [Unknown]
  - Heart rate increased [Unknown]
  - Palpitations [Unknown]
